FAERS Safety Report 8845921 (Version 1)
Quarter: 2012Q4

REPORT INFORMATION
  Report Type: Report from Study
  Country: US (occurrence: US)
  Receive Date: 20121017
  Receipt Date: 20121017
  Transmission Date: 20130627
  Serious: Yes (Other)
  Sender: FDA-Public Use
  Company Number: US-ROCHE-1144647

PATIENT
  Age: 62 Year
  Sex: Male
  Weight: 88.53 kg

DRUGS (1)
  1. VEMURAFENIB [Suspect]
     Indication: METASTATIC MALIGNANT MELANOMA
     Dosage: 4 pills
     Route: 048
     Dates: start: 20110823

REACTIONS (5)
  - Squamous cell carcinoma of skin [Unknown]
  - Rash generalised [Not Recovered/Not Resolved]
  - Skin disorder [Not Recovered/Not Resolved]
  - Alopecia [Unknown]
  - Lacrimation increased [Unknown]
